FAERS Safety Report 5782188-3 (Version None)
Quarter: 2008Q2

REPORT INFORMATION
  Report Type: 
  Country: None (occurrence: None)
  Receive Date: 20080623
  Receipt Date: 20080611
  Transmission Date: 20081010
  Serious: Yes (Other)
  Sender: FDA-Public Use
  Company Number: US-SANOFI-SYNTHELABO-A03200802394

PATIENT
  Age: 72 Year
  Sex: Female

DRUGS (2)
  1. DARVOCET [Concomitant]
     Indication: DRUG USE FOR UNKNOWN INDICATION
     Dosage: UNK
     Route: 065
  2. PLAVIX [Suspect]
     Indication: STENT PLACEMENT
     Dosage: UNK
     Route: 048
     Dates: start: 20060101

REACTIONS (4)
  - ASTHENIA [None]
  - CONFUSIONAL STATE [None]
  - DELIRIUM [None]
  - LOSS OF CONSCIOUSNESS [None]
